FAERS Safety Report 23585838 (Version 1)
Quarter: 2024Q1

REPORT INFORMATION
  Report Type: Spontaneous
  Country: US (occurrence: US)
  Receive Date: 20240301
  Receipt Date: 20240301
  Transmission Date: 20240410
  Serious: Yes (Other)
  Sender: FDA-Public Use
  Company Number: US-BAYER-2024A027693

PATIENT
  Age: 33 Year
  Sex: Female

DRUGS (1)
  1. MIRENA [Suspect]
     Active Substance: LEVONORGESTREL
     Indication: Progesterone
     Dosage: 20?G/DAY
     Route: 015
     Dates: start: 2020

REACTIONS (5)
  - Seizure [None]
  - Genital haemorrhage [None]
  - Sleep deficit [None]
  - Off label use of device [None]
  - Device use issue [None]

NARRATIVE: CASE EVENT DATE: 20231123
